FAERS Safety Report 6902955-X (Version None)
Quarter: 2010Q3

REPORT INFORMATION
  Report Type: 
  Country: None (occurrence: None)
  Receive Date: 20100803
  Receipt Date: 20080717
  Transmission Date: 20110219
  Serious: Yes (Other)
  Sender: FDA-Public Use
  Company Number: US-PFIZER INC-2008060293

PATIENT
  Sex: Female
  Weight: 67.72 kg

DRUGS (10)
  1. LYRICA [Suspect]
     Indication: NEUROPATHY PERIPHERAL
     Route: 048
     Dates: start: 20060101
  2. LYRICA [Suspect]
     Indication: NEURALGIA
  3. GABAPENTIN [Suspect]
     Indication: NEUROPATHY PERIPHERAL
  4. GABAPENTIN [Suspect]
     Indication: NEURALGIA
  5. ACTONEL [Concomitant]
  6. PRILOSEC [Concomitant]
  7. CALCIUM [Concomitant]
  8. VITAMIN TAB [Concomitant]
  9. ASPIRIN [Concomitant]
  10. FISH OIL [Concomitant]

REACTIONS (3)
  - BLOOD CHOLESTEROL INCREASED [None]
  - PAIN IN EXTREMITY [None]
  - SPEECH DISORDER [None]
